FAERS Safety Report 5596831-5 (Version None)
Quarter: 2008Q1

REPORT INFORMATION
  Report Type: 
  Country: None (occurrence: None)
  Receive Date: 20080119
  Receipt Date: 20080108
  Transmission Date: 20080703
  Serious: Yes (Other)
  Sender: FDA-Public Use
  Company Number: US-PFIZER INC-2008003963

PATIENT
  Sex: Female

DRUGS (1)
  1. CHANTIX [Suspect]

REACTIONS (7)
  - AGGRESSION [None]
  - DEPRESSION [None]
  - FLATULENCE [None]
  - IRRITABILITY [None]
  - NAUSEA [None]
  - PERSONALITY CHANGE [None]
  - SOMNOLENCE [None]
